FAERS Safety Report 13277663 (Version 1)
Quarter: 2017Q1

REPORT INFORMATION
  Report Type: Report from Study
  Country: US (occurrence: US)
  Receive Date: 20170228
  Receipt Date: 20170228
  Transmission Date: 20170428
  Serious: Yes (Hospitalization)
  Sender: FDA-Public Use
  Company Number: GXBR2017US000886

PATIENT
  Age: 65 Year
  Sex: Female
  Weight: 52.7 kg

DRUGS (36)
  1. CIPRO [Concomitant]
     Active Substance: CIPROFLOXACIN HYDROCHLORIDE
     Indication: INFECTION PROPHYLAXIS
     Dosage: UNK DF, UNK
     Route: 065
     Dates: start: 20161020, end: 20161021
  2. BENADRYL [Concomitant]
     Active Substance: DIPHENHYDRAMINE HYDROCHLORIDE
     Indication: PREMEDICATION
     Dosage: UNK DF, UNK
     Route: 065
     Dates: start: 20161020, end: 20161020
  3. CHRONULAC [Concomitant]
     Active Substance: LACTULOSE
     Indication: CONSTIPATION PROPHYLAXIS
     Dosage: UNK DF, UNK
     Route: 065
     Dates: start: 20161018, end: 20161018
  4. ATIVAN [Concomitant]
     Active Substance: LORAZEPAM
     Indication: ANXIETY
     Dosage: UNK DF, UNK
     Route: 065
     Dates: start: 20161020, end: 20161020
  5. PHENERGAN [Concomitant]
     Active Substance: PROMETHAZINE HYDROCHLORIDE
     Indication: RHINITIS ALLERGIC
     Dosage: UNK DF, UNK
     Route: 065
     Dates: start: 20161016, end: 20161017
  6. DIFLUCAN [Concomitant]
     Active Substance: FLUCONAZOLE
     Indication: ANTIFUNGAL PROPHYLAXIS
     Dosage: UNK DF, UNK
     Route: 065
     Dates: start: 20161016, end: 20161021
  7. ALBUTEROL HFA [Concomitant]
     Active Substance: ALBUTEROL SULFATE
     Indication: ASTHMA
     Dosage: UNK DF, UNK
     Route: 065
     Dates: start: 20161016, end: 20161021
  8. COLACE [Concomitant]
     Active Substance: DOCUSATE SODIUM
     Indication: CONSTIPATION PROPHYLAXIS
     Dosage: UNK DF, UNK
     Route: 065
     Dates: start: 20161016, end: 20161021
  9. ZOVIRAX [Concomitant]
     Active Substance: ACYCLOVIR
     Indication: INFECTION PROPHYLAXIS
     Dosage: UNK DF, UNK
     Route: 065
     Dates: start: 20161016, end: 20161021
  10. KYTRIL [Concomitant]
     Active Substance: GRANISETRON HYDROCHLORIDE
     Indication: PREMEDICATION
     Dosage: UNK DF, UNK
     Route: 065
     Dates: start: 20161016, end: 20161016
  11. DILAUDID [Concomitant]
     Active Substance: HYDROMORPHONE HYDROCHLORIDE
     Indication: PAIN
     Dosage: UNK DF, UNK
     Route: 065
     Dates: start: 20161016, end: 20161021
  12. PHENERGAN [Concomitant]
     Active Substance: PROMETHAZINE HYDROCHLORIDE
     Indication: NAUSEA
     Dosage: UNK DF, UNK
     Route: 065
     Dates: start: 20161020, end: 20161020
  13. GEMTUZUMAB OZOGAMICIN [Suspect]
     Active Substance: GEMTUZUMAB OZOGAMICIN
     Indication: PRODUCT USED FOR UNKNOWN INDICATION
     Dosage: 3 MG/M2, UNK
     Route: 042
     Dates: start: 20161020
  14. TYLENOL [Concomitant]
     Active Substance: ACETAMINOPHEN
     Indication: PAIN
     Dosage: UNK DF, UNK
     Route: 065
     Dates: start: 20161016, end: 20161021
  15. ENTOCORT EC [Concomitant]
     Active Substance: BUDESONIDE
     Indication: CROHN^S DISEASE
     Dosage: UNK DF, UNK
     Route: 065
     Dates: start: 20161016, end: 20161021
  16. FLONASE [Concomitant]
     Active Substance: FLUTICASONE PROPIONATE
     Indication: RHINITIS ALLERGIC
     Dosage: UNK DF, UNK
     Route: 065
     Dates: start: 20161016, end: 20161021
  17. SYNTHROID [Concomitant]
     Active Substance: LEVOTHYROXINE SODIUM
     Indication: HYPOTHYROIDISM
     Dosage: UNK DF, UNK
     Route: 065
     Dates: start: 20161016, end: 20161021
  18. MELATONIN [Concomitant]
     Active Substance: MELATONIN
     Indication: INSOMNIA
     Dosage: UNK DF, UNK
     Route: 065
     Dates: start: 20161016, end: 20161021
  19. BISACODYL. [Concomitant]
     Active Substance: BISACODYL
     Indication: CONSTIPATION
     Dosage: UNK DF, UNK
     Route: 065
     Dates: start: 20161015
  20. SOLU-MEDROL [Concomitant]
     Active Substance: METHYLPREDNISOLONE SODIUM SUCCINATE
     Indication: PREMEDICATION
     Dosage: UNK DF, UNK
     Route: 065
     Dates: start: 20161020, end: 20161020
  21. SIMETHICONE (DIMETHICONE) [Concomitant]
     Active Substance: DIMETHICONE
     Indication: FLATULENCE
     Dosage: UNK DF, UNK
     Route: 065
     Dates: start: 20161017, end: 20161018
  22. OMEPRAZOLE. [Concomitant]
     Active Substance: OMEPRAZOLE
     Indication: GASTROOESOPHAGEAL REFLUX DISEASE
     Dosage: UNK DF, UNK
     Route: 065
     Dates: start: 20161016, end: 20161021
  23. ZOFRAN [Concomitant]
     Active Substance: ONDANSETRON HYDROCHLORIDE
     Indication: NAUSEA
     Dosage: UNK DF, UNK
     Route: 065
     Dates: start: 20161016, end: 20161020
  24. COMPAZINE [Concomitant]
     Active Substance: PROCHLORPERAZINE MALEATE
     Indication: NAUSEA
     Dosage: UNK DF, UNK
     Route: 065
     Dates: start: 20161016, end: 20161021
  25. SPIRIVA [Concomitant]
     Active Substance: TIOTROPIUM BROMIDE MONOHYDRATE
     Indication: ASTHMA
     Dosage: UNK DF, UNK
     Route: 065
     Dates: start: 20161016, end: 20161021
  26. PROAIR HFA [Concomitant]
     Active Substance: ALBUTEROL SULFATE
     Indication: PRODUCT USED FOR UNKNOWN INDICATION
     Dosage: UNK DF, UNK
     Route: 065
  27. DECITABINE. [Suspect]
     Active Substance: DECITABINE
     Indication: PRODUCT USED FOR UNKNOWN INDICATION
     Dosage: UNK DF, UNK
     Route: 065
  28. XANAX [Concomitant]
     Active Substance: ALPRAZOLAM
     Indication: ANXIETY
     Dosage: UNK DF, UNK
     Route: 065
     Dates: start: 20161016, end: 20161021
  29. WELLBUTRIN SR [Concomitant]
     Active Substance: BUPROPION HYDROCHLORIDE
     Indication: SMOKING CESSATION THERAPY
     Dosage: UNK DF, UNK
     Route: 065
     Dates: start: 20161016, end: 20161021
  30. MAGNESIUM [Concomitant]
     Active Substance: MAGNESIUM
     Indication: HYPOMAGNESAEMIA
     Dosage: UNK DF, UNK
     Route: 065
     Dates: start: 20161019, end: 20161019
  31. GLYCOLAX [Concomitant]
     Active Substance: POLYETHYLENE GLYCOL 3350
     Indication: CONSTIPATION PROPHYLAXIS
     Dosage: UNK DF, UNK
     Route: 065
     Dates: start: 20161016, end: 20161021
  32. VENTOLIN [Concomitant]
     Active Substance: ALBUTEROL SULFATE
     Indication: PRODUCT USED FOR UNKNOWN INDICATION
     Dosage: UNK DF, UNK
     Route: 065
  33. ERGOCALCIFEROL. [Concomitant]
     Active Substance: ERGOCALCIFEROL
     Indication: VITAMIN D DEFICIENCY
     Dosage: UNK DF, UNK
     Route: 065
     Dates: start: 20161016, end: 20161021
  34. KLOR-CON M10 [Concomitant]
     Active Substance: POTASSIUM CHLORIDE
     Indication: HYPOKALAEMIA
     Dosage: UNK DF, UNK
     Route: 065
     Dates: start: 20161018, end: 20161019
  35. SENOKOT [Concomitant]
     Active Substance: SENNOSIDES
     Indication: CONSTIPATION PROPHYLAXIS
     Dosage: UNK DF, UNK
     Route: 065
     Dates: start: 20161016, end: 20161021
  36. PROVENTIL [Concomitant]
     Active Substance: ALBUTEROL
     Indication: PRODUCT USED FOR UNKNOWN INDICATION
     Dosage: UNK DF, UNK
     Route: 065

REACTIONS (1)
  - Febrile neutropenia [Recovered/Resolved]

NARRATIVE: CASE EVENT DATE: 20161107
